FAERS Safety Report 23162927 (Version 1)
Quarter: 2023Q4

REPORT INFORMATION
  Report Type: Spontaneous
  Country: US (occurrence: US)
  Receive Date: 20231109
  Receipt Date: 20231109
  Transmission Date: 20240110
  Serious: No
  Sender: FDA-Public Use
  Company Number: US-drreddys-SPO/USA/23/0178958

PATIENT
  Age: 42 Year
  Sex: Female

DRUGS (6)
  1. DOXYCYCLINE [Suspect]
     Active Substance: DOXYCYCLINE
     Indication: Alopecia scarring
     Dosage: HIGHER DOSES
  2. DOXYCYCLINE [Suspect]
     Active Substance: DOXYCYCLINE
     Route: 048
  3. HALCINONIDE [Concomitant]
     Active Substance: HALCINONIDE
     Indication: Inflammation
     Dosage: AS NEEDED
     Route: 061
  4. MINOXIDIL [Concomitant]
     Active Substance: MINOXIDIL
     Indication: Alopecia scarring
     Route: 048
  5. TRIAMCINOLONE [Concomitant]
     Active Substance: TRIAMCINOLONE
     Indication: Alopecia scarring
     Dosage: EXTENDED BEYOND ONCE A MONTH
     Route: 026
  6. TRIAMCINOLONE [Concomitant]
     Active Substance: TRIAMCINOLONE
     Route: 026

REACTIONS (2)
  - Gastrointestinal disorder [Unknown]
  - Product use in unapproved indication [Unknown]
